FAERS Safety Report 9565568 (Version 1)
Quarter: 2013Q3

REPORT INFORMATION
  Report Type: Report from Study
  Country: US (occurrence: US)
  Receive Date: 20130930
  Receipt Date: 20130930
  Transmission Date: 20140515
  Serious: Yes (Death, Hospitalization, Other)
  Sender: FDA-Public Use
  Company Number: US-DENDREON CORPORATION-2013PROUSA03162

PATIENT
  Age: 64 Year
  Sex: Male
  Weight: 75.1 kg

DRUGS (21)
  1. SIPULEUCEL-T [Suspect]
     Indication: PROSTATE CANCER METASTATIC
     Dosage: 250 ML, SINGLE
     Route: 042
     Dates: start: 20120806, end: 20120806
  2. SIPULEUCEL-T [Suspect]
     Dosage: 250 ML, SINGLE
     Route: 042
     Dates: start: 20120820, end: 20120820
  3. SIPULEUCEL-T [Suspect]
     Dosage: 250 ML, SINGLE
     Route: 042
     Dates: start: 20120910, end: 20120910
  4. CABAZITAXEL [Concomitant]
     Dosage: 50 MG, UNK
     Route: 042
  5. LOVAZA [Concomitant]
     Dosage: 1 G, QD
  6. TOPROL [Concomitant]
     Dosage: 25 MG, BID
  7. DEMEROL [Concomitant]
     Indication: PAIN
     Dosage: 25 MG, UNK
     Route: 042
  8. ASPIRIN [Concomitant]
     Indication: PROPHYLAXIS
     Dosage: 81 MG, UNK
  9. SYMBICORT [Concomitant]
  10. LIVALO [Concomitant]
     Indication: BLOOD CHOLESTEROL INCREASED
     Dosage: 2 MG, QD
  11. AMBIEN [Concomitant]
     Dosage: 10 MG, QD
  12. MUCINEX [Concomitant]
     Dosage: 600 UNK, BID
  13. NEULASTA [Concomitant]
     Dosage: 6 MG, EVERY 21 DAYS
  14. PLAVIX [Concomitant]
     Dosage: 75 MG, QD
  15. POTASSIUM CHLORIDE [Concomitant]
     Dosage: 20 MEQ, QD
  16. PREVACID [Concomitant]
  17. PROCRIT [Concomitant]
     Dosage: 20000 UNITS, WEEKLY
  18. XGEVA [Concomitant]
     Dosage: 120 MG, EVERY 4 MONTHS
  19. ZOLADEX [Concomitant]
  20. PREDNISONE [Concomitant]
     Dosage: 5 MG, UNK
  21. JEVTANA [Concomitant]
     Dosage: 50 MG, EVERY 3 WEEKS

REACTIONS (1)
  - Transient ischaemic attack [Recovered/Resolved with Sequelae]
